FAERS Safety Report 9750064 (Version 2)
Quarter: 2015Q3

REPORT INFORMATION
  Report Type: Spontaneous
  Country: US (occurrence: US)
  Receive Date: 20131212
  Receipt Date: 20150730
  Transmission Date: 20151125
  Serious: No
  Sender: FDA-Public Use
  Company Number: US-GILEAD-US-CVT-090798

PATIENT
  Age: 83 Year
  Sex: Female

DRUGS (2)
  1. FUROSEMIDE                         /00032601/ [Concomitant]
  2. RANEXA [Suspect]
     Active Substance: RANOLAZINE
     Indication: ANGINA PECTORIS

REACTIONS (3)
  - Peripheral swelling [Recovering/Resolving]
  - Angina pectoris [Recovered/Resolved]
  - Unevaluable event [Recovering/Resolving]
